FAERS Safety Report 4740854-2 (Version None)
Quarter: 2005Q3

REPORT INFORMATION
  Report Type: 
  Country: None (occurrence: None)
  Receive Date: 20050810
  Receipt Date: 20041217
  Transmission Date: 20060218
  Serious: No
  Sender: FDA-Public Use
  Company Number: US-GLAXOSMITHKLINE-A0537747A

PATIENT

DRUGS (1)
  1. TAGAMET [Suspect]
     Indication: ULCER

REACTIONS (1)
  - PRURITUS [None]
